FAERS Safety Report 12667593 (Version 2)
Quarter: 2016Q3

REPORT INFORMATION
  Report Type: Report from Study
  Country: AT (occurrence: AT)
  Receive Date: 20160819
  Receipt Date: 20160906
  Transmission Date: 20161109
  Serious: Yes (Hospitalization)
  Sender: FDA-Public Use
  Company Number: PHHY2016AT092833

PATIENT
  Sex: Female
  Weight: 70 kg

DRUGS (12)
  1. PANTOLOC//PANTOPRAZOLE SODIUM SESQUIHYDRATE [Concomitant]
     Active Substance: PANTOPRAZOLE SODIUM
     Indication: PRODUCT USED FOR UNKNOWN INDICATION
     Dosage: 40 MG, QD (MORNING)
     Route: 065
  2. AMLODIPIN//AMLODIPINE [Concomitant]
     Indication: PRODUCT USED FOR UNKNOWN INDICATION
     Dosage: 0.5 DF, QD (EVENING, ACCORDING TO BLOOD PRESSURE)
     Route: 065
  3. MARCUMAR [Concomitant]
     Active Substance: PHENPROCOUMON
     Indication: PRODUCT USED FOR UNKNOWN INDICATION
     Route: 065
  4. PRADAXA//DABIGATRAN ETEXILATE MESILATE [Concomitant]
     Indication: PRODUCT USED FOR UNKNOWN INDICATION
     Dosage: 2 DF, BID ((MORNING AND EVENING))
     Route: 065
  5. RAMIPRIL. [Concomitant]
     Active Substance: RAMIPRIL
     Indication: PRODUCT USED FOR UNKNOWN INDICATION
     Dosage: 5 MG, BID (MORNING AND EVENING)
     Route: 065
  6. BERIPLEX HS [Concomitant]
     Active Substance: COAGULATION FACTOR IX HUMAN\COAGULATION FACTOR VII HUMAN\COAGULATION FACTOR X HUMAN\PROTEIN C\PROTEIN S HUMAN\PROTHROMBIN
     Indication: PRODUCT USED FOR UNKNOWN INDICATION
     Route: 042
  7. SORTIS [Concomitant]
     Active Substance: ATORVASTATIN
     Indication: PRODUCT USED FOR UNKNOWN INDICATION
     Dosage: 10 MG, QD (EVENING)
     Route: 065
  8. EXEMESTAN [Suspect]
     Active Substance: EXEMESTANE
     Indication: BREAST CANCER
     Dosage: 25 MG, QD
     Route: 065
     Dates: start: 20160601
  9. AROMASIN [Concomitant]
     Active Substance: EXEMESTANE
     Indication: PRODUCT USED FOR UNKNOWN INDICATION
     Dosage: UNK UNK, BID
     Route: 065
  10. AFINITOR [Suspect]
     Active Substance: EVEROLIMUS
     Indication: BREAST CANCER
     Dosage: 10 MG, QD
     Route: 065
     Dates: start: 20160601
  11. VITAMINS WITH MINERALS [Concomitant]
     Active Substance: MINERALS\VITAMINS
     Indication: PRODUCT USED FOR UNKNOWN INDICATION
     Dosage: UNK UNK, BID
     Route: 065
  12. CONCOR [Concomitant]
     Active Substance: BISOPROLOL FUMARATE
     Indication: PRODUCT USED FOR UNKNOWN INDICATION
     Dosage: 2.5 MG, QD (MORNING)
     Route: 065

REACTIONS (23)
  - Erythema [Recovered/Resolved]
  - International normalised ratio increased [Unknown]
  - Haemoglobin decreased [Unknown]
  - Borderline serous tumour of ovary [Unknown]
  - Decreased appetite [Not Recovered/Not Resolved]
  - Aspartate aminotransferase increased [Unknown]
  - Acute kidney injury [Recovered/Resolved]
  - Spinal osteoarthritis [Unknown]
  - Haematocrit decreased [Unknown]
  - Activated partial thromboplastin time prolonged [Unknown]
  - Endometrial adenocarcinoma [Unknown]
  - Blood lactate dehydrogenase increased [Unknown]
  - Dehydration [Unknown]
  - Second primary malignancy [Unknown]
  - Malignant neoplasm progression [Unknown]
  - General physical health deterioration [Recovering/Resolving]
  - Fatigue [Recovering/Resolving]
  - Red blood cell count decreased [Unknown]
  - Intertrigo [Recovering/Resolving]
  - Platelet count decreased [Unknown]
  - Prothrombin time shortened [Unknown]
  - Osteoarthritis [Unknown]
  - Weight bearing difficulty [Unknown]

NARRATIVE: CASE EVENT DATE: 20160621
